FAERS Safety Report 13783717 (Version 1)
Quarter: 2017Q3

REPORT INFORMATION
  Report Type: Report from Study
  Country: FR (occurrence: FR)
  Receive Date: 20170724
  Receipt Date: 20170724
  Transmission Date: 20171127
  Serious: Yes (Life-Threatening, Hospitalization, Other)
  Sender: FDA-Public Use
  Company Number: FR-OTSUKA-2017_015628

PATIENT
  Age: 4 Year
  Sex: Male

DRUGS (2)
  1. ENDOXAN [Suspect]
     Active Substance: CYCLOPHOSPHAMIDE
     Indication: MEDULLOBLASTOMA
     Dosage: 1000 MG
     Route: 042
     Dates: start: 20170616, end: 20170619
  2. BUSULFAN. [Suspect]
     Active Substance: BUSULFAN
     Indication: MEDULLOBLASTOMA
     Dosage: 17.5 MG
     Route: 042
     Dates: start: 20170621, end: 20170624

REACTIONS (1)
  - Septic shock [Recovered/Resolved]

NARRATIVE: CASE EVENT DATE: 20170627
